FAERS Safety Report 10902782 (Version 1)
Quarter: 2015Q1

REPORT INFORMATION
  Report Type: Other
  Country: US (occurrence: US)
  Receive Date: 20150310
  Receipt Date: 20150310
  Transmission Date: 20150721
  Serious: Yes (Other)
  Sender: FDA-Public Use
  Company Number: US-EMD SERONO-8014238

PATIENT

DRUGS (2)
  1. RECOMBINANT HUMAN GROWTH HORMONE (RHGH) [Suspect]
     Active Substance: SOMATROPIN
     Indication: GROWTH HORMONE DEFICIENCY
  2. RECOMBINANT HUMAN GROWTH HORMONE (RHGH) [Suspect]
     Active Substance: SOMATROPIN
     Indication: INSULIN-LIKE GROWTH FACTOR

REACTIONS (1)
  - Intracranial pressure increased [Recovered/Resolved]
